FAERS Safety Report 13410150 (Version 5)
Quarter: 2023Q1

REPORT INFORMATION
  Report Type: Report from Study
  Country: CO (occurrence: CO)
  Receive Date: 20170406
  Receipt Date: 20230128
  Transmission Date: 20230418
  Serious: Yes (Other)
  Sender: FDA-Public Use
  Company Number: PHHY2016CO045650

PATIENT
  Age: 39 Year
  Sex: Male
  Weight: 89 kg

DRUGS (10)
  1. COSENTYX [Suspect]
     Active Substance: SECUKINUMAB
     Indication: Psoriasis
     Dosage: 300 MG, QW
     Route: 058
     Dates: start: 20160314
  2. COSENTYX [Suspect]
     Active Substance: SECUKINUMAB
     Dosage: 300 MG, QMO
     Route: 058
     Dates: start: 20161202, end: 20161203
  3. COSENTYX [Suspect]
     Active Substance: SECUKINUMAB
     Dosage: 300 MG, QMO
     Route: 058
  4. OXYCODONE [Concomitant]
     Active Substance: OXYCODONE
     Indication: Product used for unknown indication
     Dosage: 1 DF, QD
     Route: 065
  5. OXYCODONE [Concomitant]
     Active Substance: OXYCODONE
     Dosage: 3 DF, QD
     Route: 065
  6. AMLODIPINE [Concomitant]
     Active Substance: AMLODIPINE BESYLATE
     Indication: Product used for unknown indication
     Dosage: UNK
     Route: 065
  7. LOSARTAN [Concomitant]
     Active Substance: LOSARTAN
     Indication: Product used for unknown indication
     Dosage: UNK
     Route: 065
  8. METFORMIN [Concomitant]
     Active Substance: METFORMIN HYDROCHLORIDE
     Indication: Product used for unknown indication
     Dosage: UNK
     Route: 065
  9. RANITIDINE [Concomitant]
     Active Substance: RANITIDINE
     Indication: Product used for unknown indication
     Dosage: UNK
     Route: 065
  10. LEVOTHYROXINE [Concomitant]
     Active Substance: LEVOTHYROXINE
     Indication: Product used for unknown indication
     Dosage: UNK
     Route: 065

REACTIONS (14)
  - Renal failure [Unknown]
  - Stab wound [Unknown]
  - Psoriasis [Unknown]
  - Feeling hot [Unknown]
  - Insomnia [Unknown]
  - Rash [Unknown]
  - Arthralgia [Unknown]
  - Nail discolouration [Unknown]
  - Inflammation [Unknown]
  - Skin lesion [Unknown]
  - Illness [Unknown]
  - Adrenal disorder [Unknown]
  - COVID-19 [Unknown]
  - Skin plaque [Unknown]

NARRATIVE: CASE EVENT DATE: 20160402
